FAERS Safety Report 8226056-6 (Version None)
Quarter: 2012Q1

REPORT INFORMATION
  Report Type: 
  Country: None (occurrence: None)
  Receive Date: 20120319
  Receipt Date: 20120314
  Transmission Date: 20120608
  Serious: Yes (Other)
  Sender: FDA-Public Use
  Company Number: CL-396-2012

PATIENT
  Age: 39 Year
  Sex: Male

DRUGS (1)
  1. AMIODARONE HCL [Suspect]
     Indication: BRUGADA SYNDROME
     Dosage: 200MG OD UNK
     Dates: start: 20070101, end: 20100101

REACTIONS (4)
  - PLEURAL EFFUSION [None]
  - PERICARDIAL EFFUSION [None]
  - C-REACTIVE PROTEIN INCREASED [None]
  - RED BLOOD CELL SEDIMENTATION RATE INCREASED [None]
